FAERS Safety Report 4807464-X (Version None)
Quarter: 2005Q4

REPORT INFORMATION
  Report Type: 
  Country: None (occurrence: None)
  Receive Date: 20051024
  Receipt Date: 20051013
  Transmission Date: 20060501
  Serious: Yes (Hospitalization)
  Sender: FDA-Public Use
  Company Number: CH-JNJFOC-20051003184

PATIENT
  Sex: Female

DRUGS (12)
  1. RISPERDAL [Suspect]
     Route: 048
  2. RISPERDAL [Suspect]
     Indication: DRUG USE FOR UNKNOWN INDICATION
     Route: 048
  3. TEMESTA [Concomitant]
     Route: 048
  4. TEMESTA [Concomitant]
     Route: 048
  5. TEMESTA [Concomitant]
     Route: 048
  6. TEMESTA [Concomitant]
     Route: 048
  7. TEMESTA [Concomitant]
     Route: 048
  8. SPASMO-URGENIN [Concomitant]
  9. SPASMO-URGENIN [Concomitant]
  10. SPASMO-URGENIN [Concomitant]
  11. ASPIRIN [Concomitant]
     Route: 048
  12. DIPIPERON [Concomitant]
     Route: 048

REACTIONS (2)
  - DROP ATTACKS [None]
  - HYPOTENSION [None]
